FAERS Safety Report 5346479-2 (Version None)
Quarter: 2007Q2

REPORT INFORMATION
  Report Type: 
  Country: None (occurrence: None)
  Receive Date: 20070605
  Receipt Date: 20070524
  Transmission Date: 20071010
  Serious: No
  Sender: FDA-Public Use
  Company Number: DE-PFIZER INC-2007039148

PATIENT
  Sex: Female
  Weight: 65 kg

DRUGS (1)
  1. DEPO-CLINOVIR [Suspect]
     Indication: CONTRACEPTION
     Dosage: FREQ:1ST INJECTION
     Route: 030
     Dates: start: 20070430, end: 20070430

REACTIONS (3)
  - FATIGUE [None]
  - MYALGIA [None]
  - NAUSEA [None]
